FAERS Safety Report 6344266-X (Version None)
Quarter: 2009Q3

REPORT INFORMATION
  Report Type: 
  Country: None (occurrence: None)
  Receive Date: 20090904
  Receipt Date: 20090904
  Transmission Date: 20100115
  Serious: Yes (Other)
  Sender: FDA-Public Use
  Company Number: None

PATIENT
  Sex: Female
  Weight: 125.1021 kg

DRUGS (2)
  1. DOXORUBICIN HCL [Suspect]
     Indication: BREAST CANCER
     Dosage: 132MG EVERY 21 DAYS IV
     Route: 042
     Dates: start: 20090813, end: 20090813
  2. CYTOXAN [Suspect]
     Dosage: 1320MG EVERY 21 DAYS IV DRIP
     Route: 041
     Dates: start: 20090813, end: 20090813

REACTIONS (1)
  - NEUTROPHIL COUNT DECREASED [None]
